FAERS Safety Report 4324184-9 (Version None)
Quarter: 2004Q1

REPORT INFORMATION
  Report Type: 
  Country: None (occurrence: None)
  Receive Date: 20040326
  Receipt Date: 20040105
  Transmission Date: 20041129
  Serious: No
  Sender: FDA-Public Use
  Company Number: US-GLAXOSMITHKLINE-A0491376A

PATIENT
  Sex: Female

DRUGS (4)
  1. ADVAIR DISKUS 100/50 [Suspect]
     Indication: ASTHMA
     Dosage: 100PUFF TWICE PER DAY
     Route: 055
     Dates: start: 20010401
  2. ALBUTEROL [Concomitant]
     Route: 065
  3. NASONEX [Concomitant]
     Route: 065
  4. MAXAIR [Concomitant]
     Route: 065

REACTIONS (1)
  - TREMOR [None]
